FAERS Safety Report 5140418-5 (Version None)
Quarter: 2006Q4

REPORT INFORMATION
  Report Type: 
  Country: None (occurrence: None)
  Receive Date: 20061031
  Receipt Date: 20061027
  Transmission Date: 20070319
  Serious: Yes (Hospitalization)
  Sender: FDA-Public Use
  Company Number: US-BRISTOL-MYERS SQUIBB COMPANY-13558473

PATIENT
  Age: 64 Year
  Sex: Male

DRUGS (6)
  1. CISPLATIN [Suspect]
     Indication: GASTRIC CANCER
     Route: 041
     Dates: start: 20060928, end: 20060929
  2. FLUOROURACIL [Suspect]
     Indication: GASTRIC CANCER
     Route: 041
     Dates: start: 20060928, end: 20061002
  3. LISINOPRIL [Concomitant]
     Indication: BLOOD PRESSURE
     Route: 048
  4. REGLAN [Concomitant]
     Indication: GASTRIC HYPOMOTILITY
     Route: 048
  5. HYDROCHLOROTHIAZIDE [Concomitant]
     Indication: DIURETIC THERAPY
     Route: 048
  6. SENNA [Concomitant]
     Indication: DIARRHOEA
     Route: 048

REACTIONS (4)
  - DYSPHAGIA [None]
  - HAEMORRHAGE [None]
  - NEUTROPENIA [None]
  - OESOPHAGITIS [None]
